FAERS Safety Report 22041074 (Version 1)
Quarter: 2023Q1

REPORT INFORMATION
  Report Type: Spontaneous
  Country: FR (occurrence: FR)
  Receive Date: 20230227
  Receipt Date: 20230227
  Transmission Date: 20230418
  Serious: Yes (Hospitalization)
  Sender: FDA-Public Use
  Company Number: None

PATIENT
  Age: 46 Year
  Sex: Male
  Weight: 106 kg

DRUGS (5)
  1. VANCOMYCIN [Suspect]
     Active Substance: VANCOMYCIN
     Indication: Antibiotic prophylaxis
     Dosage: NOT SPECIFIED
     Route: 042
     Dates: start: 20221227, end: 20221229
  2. CALCIPARINE [Suspect]
     Active Substance: HEPARIN CALCIUM
     Indication: Haemofiltration
     Dosage: 15000 INTERNATIONAL UNIT, QD
     Route: 058
     Dates: start: 20221229, end: 20230106
  3. RETACRIT [Suspect]
     Active Substance: EPOETIN ALFA-EPBX
     Indication: Nephrogenic anaemia
     Dosage: 80000 INTERNATIONAL UNIT, QW
     Route: 042
     Dates: start: 20221231, end: 20230106
  4. PIPERACILLIN SODIUM\TAZOBACTAM SODIUM [Suspect]
     Active Substance: PIPERACILLIN SODIUM\TAZOBACTAM SODIUM
     Indication: Antibiotic prophylaxis
     Dosage: NOT SPECIFIED
     Route: 042
     Dates: start: 20221227, end: 20221230
  5. GENTAMICIN [Suspect]
     Active Substance: GENTAMICIN
     Indication: Antibiotic prophylaxis
     Dosage: NON SPECIFIED
     Route: 042
     Dates: start: 20221227, end: 20221229

REACTIONS (2)
  - Acute kidney injury [Recovered/Resolved]
  - Urticaria [Recovering/Resolving]

NARRATIVE: CASE EVENT DATE: 20221229
